FAERS Safety Report 5740149-4 (Version None)
Quarter: 2008Q2

REPORT INFORMATION
  Report Type: 
  Country: None (occurrence: None)
  Receive Date: 20080516
  Receipt Date: 20080508
  Transmission Date: 20081010
  Serious: Yes (Hospitalization)
  Sender: FDA-Public Use
  Company Number: DE-ROCHE-550565

PATIENT
  Sex: Male
  Weight: 80 kg

DRUGS (18)
  1. METHOXY POLYETHYLENE GLYCOL-EPOETIN BETA [Suspect]
     Dosage: DOSAGE FORM REPORTED AS: PFS.
     Route: 042
     Dates: start: 20071107
  2. METHOXY POLYETHYLENE GLYCOL-EPOETIN BETA [Suspect]
     Route: 042
     Dates: start: 20080109
  3. METHOXY POLYETHYLENE GLYCOL-EPOETIN BETA [Suspect]
     Route: 042
     Dates: start: 20080206
  4. METHOXY POLYETHYLENE GLYCOL-EPOETIN BETA [Suspect]
     Route: 042
     Dates: start: 20080310
  5. ARANESP [Concomitant]
     Dates: start: 20070927, end: 20071105
  6. BICA NORM [Concomitant]
     Dates: start: 20060106
  7. ENALAPRIL MALEATE [Concomitant]
     Dates: start: 20060601
  8. GODAMED [Concomitant]
     Dates: start: 20011210
  9. GODAMED [Concomitant]
     Dates: start: 20011210
  10. MOXONIDINE [Concomitant]
     Dates: start: 20060426
  11. RENAGEL [Concomitant]
     Dates: start: 20060919
  12. CPS PULVER [Concomitant]
     Dosage: UNIT REPORTED AS B+L
     Dates: start: 20061206
  13. DEDRALEN [Concomitant]
     Dosage: DRUG NAME REPORTED AS DEDRA.
     Dates: start: 20060503
  14. BISOPROLOL FUMARATE [Concomitant]
     Dates: start: 20061030
  15. EXFORGE [Concomitant]
     Dosage: DRUG NAME REPORTED AS EXFORGE 80 MG/160 MG AND EXFORGE 5 MG/80 MG.
     Dates: start: 20070725
  16. EXFORGE [Concomitant]
     Dosage: DRUG NAME REPORTED AS EXFORGE 80 MG/160 MG AND EXFORGE 5 MG/80 MG.
     Dates: start: 20070725
  17. EBRANTIL [Concomitant]
     Dates: start: 20070711
  18. FERRLECIT [Concomitant]
     Dates: start: 20080118

REACTIONS (1)
  - PULMONARY OEDEMA [None]
